FAERS Safety Report 6416565-4 (Version None)
Quarter: 2009Q4

REPORT INFORMATION
  Report Type: 
  Country: None (occurrence: None)
  Receive Date: 20091027
  Receipt Date: 20091015
  Transmission Date: 20100525
  Serious: Yes (Other)
  Sender: FDA-Public Use
  Company Number: FR-ELI_LILLY_AND_COMPANY-FR200909000364

PATIENT
  Age: 84 Year
  Sex: Female
  Weight: 50 kg

DRUGS (5)
  1. FORTEO [Suspect]
     Indication: OSTEOPOROSIS
     Dosage: 20 UG, DAILY (1/D)
     Route: 058
     Dates: start: 20080604
  2. HYPERIUM [Concomitant]
     Indication: HYPERTENSION
     Dosage: 1 D/F, DAILY (1/D)
     Route: 048
  3. EURELIX [Concomitant]
     Dosage: 1 D/F, DAILY (1/D)
     Route: 048
  4. PRITOR [Concomitant]
     Dosage: 80 MG, DAILY (1/D)
     Route: 048
  5. FRACTAL [Concomitant]
     Dosage: 40 MG, DAILY (1/D)
     Route: 048

REACTIONS (1)
  - PHLEBITIS [None]
